FAERS Safety Report 5302984-6 (Version None)
Quarter: 2007Q2

REPORT INFORMATION
  Report Type: 
  Country: None (occurrence: None)
  Receive Date: 20070420
  Receipt Date: 20070411
  Transmission Date: 20071010
  Serious: Yes (Hospitalization)
  Sender: FDA-Public Use
  Company Number: JP-JNJFOC-20070403568

PATIENT
  Age: 48 Year
  Sex: Male

DRUGS (2)
  1. LEVOFLOXACIN [Suspect]
     Indication: NASOPHARYNGITIS
     Route: 048
  2. LOXONIN [Suspect]
     Indication: NASOPHARYNGITIS
     Route: 048

REACTIONS (5)
  - CONJUNCTIVAL HYPERAEMIA [None]
  - GENERALISED ERYTHEMA [None]
  - PLATELET COUNT DECREASED [None]
  - RASH [None]
  - WHITE BLOOD CELL COUNT DECREASED [None]
